FAERS Safety Report 11232953 (Version 1)
Quarter: 2015Q3

REPORT INFORMATION
  Report Type: Spontaneous
  Country: IT (occurrence: IT)
  Receive Date: 20150701
  Receipt Date: 20150701
  Transmission Date: 20151125
  Serious: Yes (Other)
  Sender: FDA-Public Use
  Company Number: IT-ABBVIE-15P-083-1418988-00

PATIENT
  Age: 60 Year
  Sex: Male

DRUGS (5)
  1. EN [Suspect]
     Active Substance: DELORAZEPAM
     Indication: ANXIETY
     Route: 048
     Dates: start: 20150105, end: 20150205
  2. SEROQUEL [Suspect]
     Active Substance: QUETIAPINE FUMARATE
     Indication: PSYCHOTIC DISORDER
     Route: 048
     Dates: start: 20150105, end: 20150205
  3. DEURSIL [Concomitant]
     Active Substance: URSODIOL
     Indication: PRODUCT USED FOR UNKNOWN INDICATION
     Route: 048
  4. DEPAKIN [Suspect]
     Active Substance: VALPROATE SODIUM
     Indication: PSYCHOTIC DISORDER
     Route: 048
     Dates: start: 20150105, end: 20150205
  5. VALDORM [Suspect]
     Active Substance: VALERIAN
     Indication: INSOMNIA
     Route: 048
     Dates: start: 20150105, end: 20150205

REACTIONS (1)
  - Presyncope [Unknown]

NARRATIVE: CASE EVENT DATE: 20150205
